FAERS Safety Report 13140914 (Version 1)
Quarter: 2017Q1

REPORT INFORMATION
  Report Type: Other
  Country: US (occurrence: US)
  Receive Date: 20170123
  Receipt Date: 20170123
  Transmission Date: 20170428
  Serious: Yes (Other)
  Sender: FDA-Public Use
  Company Number: US-MEDAC PHARMA, INC.-1062309

PATIENT
  Age: 53 Year
  Sex: Male

DRUGS (9)
  1. CALCIPOTRIENE. [Concomitant]
     Active Substance: CALCIPOTRIENE
  2. FOLIC ACID. [Concomitant]
     Active Substance: FOLIC ACID
  3. ALPRAZOLAM. [Concomitant]
     Active Substance: ALPRAZOLAM
  4. DESONIDE. [Concomitant]
     Active Substance: DESONIDE
  5. BUPROPION. [Concomitant]
     Active Substance: BUPROPION
  6. L-METHYLFOLATE CALCIUM [Suspect]
     Active Substance: LEVOMEFOLATE CALCIUM
  7. DIPHENHYDRAMINE. [Concomitant]
     Active Substance: DIPHENHYDRAMINE
  8. METHOTREXATE. [Suspect]
     Active Substance: METHOTREXATE
     Indication: PSORIASIS
     Dates: start: 201403, end: 2016
  9. DULOXETINE HYDROCHLORIDE. [Concomitant]
     Active Substance: DULOXETINE HYDROCHLORIDE

REACTIONS (2)
  - Psoriasis [None]
  - Drug interaction [None]

NARRATIVE: CASE EVENT DATE: 201603
